FAERS Safety Report 12422005 (Version 1)
Quarter: 2016Q2

REPORT INFORMATION
  Report Type: Spontaneous
  Country: FR (occurrence: FR)
  Receive Date: 20160531
  Receipt Date: 20160531
  Transmission Date: 20160815
  Serious: Yes (Hospitalization)
  Sender: FDA-Public Use
  Company Number: FR-SA-2016SA103722

PATIENT
  Age: 75 Year
  Sex: Male

DRUGS (10)
  1. IRBESARTAN. [Suspect]
     Active Substance: IRBESARTAN
     Route: 065
  2. GLIMEPIRIDE. [Concomitant]
     Active Substance: GLIMEPIRIDE
  3. METFORMIN [Concomitant]
     Active Substance: METFORMIN HYDROCHLORIDE
  4. CLOPIDOGREL [Concomitant]
     Active Substance: CLOPIDOGREL BISULFATE
  5. ESOMEPRAZOLE [Concomitant]
     Active Substance: ESOMEPRAZOLE
  6. HYDROCHLOROTHIAZIDE. [Suspect]
     Active Substance: HYDROCHLOROTHIAZIDE
     Route: 065
  7. EXENATIDE [Suspect]
     Active Substance: EXENATIDE
     Route: 058
  8. SIMVASTATIN. [Concomitant]
     Active Substance: SIMVASTATIN
  9. AMLODIPINE [Concomitant]
     Active Substance: AMLODIPINE BESYLATE
     Indication: HYPERTENSION
  10. FUROSEMIDE. [Suspect]
     Active Substance: FUROSEMIDE
     Indication: CARDIAC FAILURE CONGESTIVE
     Route: 065

REACTIONS (11)
  - Tubulointerstitial nephritis [Recovered/Resolved]
  - Blood pH decreased [Recovered/Resolved]
  - Blood potassium increased [Recovered/Resolved]
  - Haematuria [Recovered/Resolved]
  - Vomiting [Recovered/Resolved]
  - Blood lactic acid increased [Recovered/Resolved]
  - Proteinuria [Recovered/Resolved]
  - Blood bicarbonate decreased [Recovered/Resolved]
  - Acute kidney injury [Recovered/Resolved]
  - Blood creatinine increased [Recovered/Resolved]
  - Altered state of consciousness [Recovered/Resolved]
